FAERS Safety Report 7586225-5 (Version None)
Quarter: 2011Q2

REPORT INFORMATION
  Report Type: 
  Country: None (occurrence: None)
  Receive Date: 20110630
  Receipt Date: 20110630
  Transmission Date: 20111010
  Serious: No
  Sender: FDA-Public Use
  Company Number: None

PATIENT
  Age: 79 Year
  Sex: Female

DRUGS (10)
  1. LOPRESSOR [Concomitant]
  2. DIOVAN [Concomitant]
  3. ZOCOR [Concomitant]
  4. VITAMIN D [Concomitant]
  5. ADCIRCA [Suspect]
     Indication: PULMONARY ARTERIAL HYPERTENSION
     Dosage: 40MG  DAILY PO
     Route: 048
     Dates: start: 20100815, end: 20110501
  6. ASPIRIN [Concomitant]
  7. LASIX [Concomitant]
  8. FOLIC ACID [Concomitant]
  9. CALCIUM/MAGNESIUM/ZINC [Concomitant]
  10. FISH OIL [Concomitant]

REACTIONS (5)
  - EYE PAIN [None]
  - HEADACHE [None]
  - VITREOUS FLOATERS [None]
  - DIZZINESS [None]
  - VISUAL ACUITY REDUCED [None]
